FAERS Safety Report 7332192-9 (Version None)
Quarter: 2011Q1

REPORT INFORMATION
  Report Type: 
  Country: None (occurrence: None)
  Receive Date: 20110222
  Receipt Date: 20110208
  Transmission Date: 20110831
  Serious: Yes (Hospitalization, Disabling, Other)
  Sender: FDA-Public Use
  Company Number: 2011P1003867

PATIENT
  Age: 63 Year
  Sex: Female
  Weight: 72.5755 kg

DRUGS (2)
  1. SANTYL [Suspect]
     Indication: WOUND
     Dosage: BID; TOP ;QD;TOP
     Route: 061
     Dates: start: 20101201
  2. MULTIPLE UNSPECIFIED PRODUCTS [Concomitant]

REACTIONS (2)
  - DRUG INEFFECTIVE [None]
  - INFECTION [None]
